FAERS Safety Report 9529838 (Version 1)
Quarter: 2013Q3

REPORT INFORMATION
  Report Type: Report from Study
  Country: US (occurrence: US)
  Receive Date: 20130917
  Receipt Date: 20130917
  Transmission Date: 20140515
  Serious: Yes (Hospitalization)
  Sender: FDA-Public Use
  Company Number: PHHO2013US011930

PATIENT
  Age: 30 Year
  Sex: Female
  Weight: 68 kg

DRUGS (1)
  1. TASIGNA [Suspect]
     Indication: SYSTEMIC SCLEROSIS
     Dosage: 800 MG, DAILY
     Route: 048
     Dates: start: 20110812, end: 20130829

REACTIONS (1)
  - Cellulitis [Recovered/Resolved]
